FAERS Safety Report 10286091 (Version 1)
Quarter: 2014Q3

REPORT INFORMATION
  Report Type: Spontaneous
  Country: US (occurrence: None)
  Receive Date: 20140703
  Receipt Date: 20140703
  Transmission Date: 20150326
  Serious: Yes (Hospitalization)
  Sender: FDA-Public Use
  Company Number: UNT-2014-002064

PATIENT
  Sex: Female

DRUGS (10)
  1. ZOCOR(SIMVASTATIN) UNKNOWN [Concomitant]
  2. CLOPIDOGREL (CLOPIDOGREL) UNKNOWN [Concomitant]
     Active Substance: CLOPIDOGREL BISULFATE
  3. TYVASO [Suspect]
     Active Substance: TREPROSTINIL
     Indication: PULMONARY ARTERIAL HYPERTENSION
     Route: 055
     Dates: start: 201302
  4. ADCIRCA (TADALAFIL) UNKNOWN [Concomitant]
  5. CALCITRIOL (CALCITRIOL) UNKNOWN [Concomitant]
  6. ASPIRIN (ACETYLSALICYLIC ACID) UNKNOWN [Concomitant]
  7. LOPRESSOR [Suspect]
     Active Substance: METOPROLOL TARTRATE
     Indication: HYPERTENSION
     Dates: end: 201405
  8. B-COMPLEX?/00003501/  (CALCIUM PANTOTHENATE, NICOTINAMIDE, PYRIDOXINE HYDROCHLORIDE, RIBOFLAVIN, THIAMINE HYDROCHLORIDE) UNKNOWN [Concomitant]
  9. HUMALOG (INSULIN LISPRO) UNKNOWN [Concomitant]
  10. LOSARTAN [Suspect]
     Active Substance: LOSARTAN
     Indication: HYPERTENSION
     Dates: end: 201405

REACTIONS (3)
  - Cough [None]
  - Hypotension [None]
  - Transient ischaemic attack [None]

NARRATIVE: CASE EVENT DATE: 201405
